FAERS Safety Report 23275685 (Version 4)
Quarter: 2024Q1

REPORT INFORMATION
  Report Type: Spontaneous
  Country: US (occurrence: US)
  Receive Date: 20231208
  Receipt Date: 20240206
  Transmission Date: 20240409
  Serious: No
  Sender: FDA-Public Use
  Company Number: US-SANOFI-01860467

PATIENT
  Age: 63 Year
  Sex: Female

DRUGS (1)
  1. TOUJEO [Suspect]
     Active Substance: INSULIN GLARGINE
     Indication: Type 2 diabetes mellitus
     Dosage: 45 IU, QD
     Dates: start: 20231124

REACTIONS (3)
  - Injection site bruising [Unknown]
  - Device issue [Unknown]
  - Product storage error [Unknown]

NARRATIVE: CASE EVENT DATE: 20230101
